FAERS Safety Report 9158589 (Version 1)
Quarter: 2013Q1

REPORT INFORMATION
  Report Type: Spontaneous
  Country: US (occurrence: US)
  Receive Date: 20130312
  Receipt Date: 20130312
  Transmission Date: 20140127
  Serious: Yes (Other)
  Sender: FDA-Public Use
  Company Number: US-PFIZER INC-2013084598

PATIENT
  Age: 65 Year
  Sex: Male

DRUGS (4)
  1. TRAMADOL HCL [Suspect]
     Indication: PAIN
  2. MORPHINE SULFATE [Suspect]
     Indication: PAIN
  3. KETOROLAC TROMETHAMINE [Suspect]
     Indication: PAIN
  4. HYDROCODONE [Suspect]
     Indication: PAIN

REACTIONS (3)
  - Hyponatraemia [Recovered/Resolved]
  - Agitation [Recovered/Resolved]
  - Confusional state [Recovered/Resolved]
